FAERS Safety Report 7999456-7 (Version None)
Quarter: 2011Q4

REPORT INFORMATION
  Report Type: 
  Country: None (occurrence: None)
  Receive Date: 20111221
  Receipt Date: 20111219
  Transmission Date: 20120403
  Serious: No
  Sender: FDA-Public Use
  Company Number: US-PFIZER INC-2011309072

PATIENT
  Sex: Female
  Weight: 83.9 kg

DRUGS (7)
  1. VITAMIN C [Concomitant]
     Dosage: UNK, DAILY
  2. MULTI-VITAMINS [Concomitant]
     Dosage: UNK
  3. VITAMIN D [Concomitant]
     Dosage: 2000 MG, DAILY
  4. SYNTHROID [Concomitant]
     Indication: THYROID DISORDER
     Dosage: 0.125 MG, DAILY
  5. ACIPHEX [Concomitant]
     Indication: GASTROOESOPHAGEAL REFLUX DISEASE
     Dosage: 20 MG, DAILY
  6. VITAMIN B-12 [Concomitant]
     Dosage: UNK, DAILY
  7. LYRICA [Suspect]
     Indication: NERVOUS SYSTEM DISORDER
     Dosage: 75 MG, 2X/DAY
     Route: 048
     Dates: start: 20101001

REACTIONS (1)
  - ALOPECIA [None]
